FAERS Safety Report 12866895 (Version 1)
Quarter: 2016Q4

REPORT INFORMATION
  Report Type: Spontaneous
  Country: CO (occurrence: CO)
  Receive Date: 20161020
  Receipt Date: 20161020
  Transmission Date: 20170207
  Serious: Yes (Other)
  Sender: FDA-Public Use
  Company Number: CO-PFIZER INC-2016489321

PATIENT
  Sex: Female

DRUGS (4)
  1. CYCLOPHOSPHAMIDE. [Suspect]
     Active Substance: CYCLOPHOSPHAMIDE
     Indication: BREAST CANCER METASTATIC
     Dosage: UNK
     Dates: start: 201509
  2. NEUPOGEN [Suspect]
     Active Substance: FILGRASTIM
     Dosage: UNK
     Dates: start: 201509
  3. ZOLEDRONIC ACID [Suspect]
     Active Substance: ZOLEDRONIC ACID
     Dosage: UNK
     Dates: start: 201509
  4. DOCETAXEL. [Suspect]
     Active Substance: DOCETAXEL
     Indication: BREAST CANCER METASTATIC
     Dosage: UNK
     Dates: start: 201509

REACTIONS (9)
  - Cough [Unknown]
  - Pleural effusion [Unknown]
  - Tricuspid valve incompetence [Unknown]
  - Alopecia [Unknown]
  - Dyspnoea [Unknown]
  - Anaemia [Unknown]
  - Pericardial effusion [Unknown]
  - Neoplasm progression [Unknown]
  - Weight decreased [Unknown]
